FAERS Safety Report 20306338 (Version 1)
Quarter: 2022Q1

REPORT INFORMATION
  Report Type: Spontaneous
  Country: US (occurrence: None)
  Receive Date: 20220106
  Receipt Date: 20220106
  Transmission Date: 20220423
  Serious: Yes (Other)
  Sender: FDA-Public Use
  Company Number: None

PATIENT
  Age: 36 Year
  Sex: Male
  Weight: 76.05 kg

DRUGS (2)
  1. CANNABIS SATIVA SUBSP. INDICA TOP [Suspect]
     Active Substance: CANNABIS SATIVA SUBSP. INDICA TOP
     Indication: Post-traumatic stress disorder
     Dates: start: 20211229, end: 20211229
  2. CANNABIS SATIVA SUBSP. INDICA TOP [Suspect]
     Active Substance: CANNABIS SATIVA SUBSP. INDICA TOP
     Indication: Sciatica

REACTIONS (10)
  - Product container seal issue [None]
  - Oropharyngeal pain [None]
  - Chest pain [None]
  - Heart rate irregular [None]
  - Burning sensation [None]
  - Nasal discomfort [None]
  - Rhinorrhoea [None]
  - Head discomfort [None]
  - Headache [None]
  - Dyspnoea [None]

NARRATIVE: CASE EVENT DATE: 20211229
